FAERS Safety Report 7455368-9 (Version None)
Quarter: 2011Q2

REPORT INFORMATION
  Report Type: 
  Country: None (occurrence: None)
  Receive Date: 20110503
  Receipt Date: 20100628
  Transmission Date: 20111010
  Serious: No
  Sender: FDA-Public Use
  Company Number: US-TYCO HEALTHCARE/MALLINCKRODT-T201001545

PATIENT
  Age: 69 Year
  Sex: Female

DRUGS (3)
  1. SYNTHROID [Concomitant]
     Indication: THYROID DISORDER
     Dosage: 75 MG, QD
     Route: 048
     Dates: start: 20050101
  2. ULTRAM [Concomitant]
     Indication: FIBROMYALGIA
     Dosage: 50 MG, TID
     Route: 048
     Dates: start: 19980101
  3. ACETAMINOPHEN AND HYDROCODONE BITARTRATE [Suspect]
     Indication: FIBROMYALGIA
     Dosage: 1/2 TAB 2-3 TIMES DAILY
     Route: 048

REACTIONS (2)
  - FEELING ABNORMAL [None]
  - DIZZINESS [None]
